FAERS Safety Report 5898489-4 (Version None)
Quarter: 2008Q3

REPORT INFORMATION
  Report Type: 
  Country: None (occurrence: None)
  Receive Date: 20080925
  Receipt Date: 20071130
  Transmission Date: 20090109
  Serious: No
  Sender: FDA-Public Use
  Company Number: A0696796A

PATIENT
  Age: 50 Year
  Sex: Female

DRUGS (1)
  1. WELLBUTRIN XL [Suspect]
     Indication: DRUG USE FOR UNKNOWN INDICATION
     Dosage: 150MG PER DAY
     Route: 048
     Dates: start: 20071030, end: 20071101

REACTIONS (1)
  - RASH [None]
